FAERS Safety Report 5483237-2 (Version None)
Quarter: 2007Q4

REPORT INFORMATION
  Report Type: 
  Country: None (occurrence: None)
  Receive Date: 20071009
  Receipt Date: 20070928
  Transmission Date: 20080405
  Serious: Yes (Other)
  Sender: FDA-Public Use
  Company Number: 2007JP004370

PATIENT
  Age: 90 Year
  Sex: Female
  Weight: 50 kg

DRUGS (8)
  1. VESICARE [Suspect]
     Indication: HYPERTONIC BLADDER
     Dosage: 5 MG, UID/QD, ORAL; 10 MG, UID/QD,
     Dates: start: 20070620, end: 20070703
  2. VESICARE [Suspect]
     Indication: HYPERTONIC BLADDER
     Dosage: 5 MG, UID/QD, ORAL; 10 MG, UID/QD,
     Dates: start: 20070704, end: 20070721
  3. ARICEPT [Suspect]
     Indication: DEMENTIA
     Dosage: 5 MG, UID/QD, ORAL; 5 MG/D, ORAL
     Route: 048
     Dates: start: 20040709, end: 20070721
  4. ARICEPT [Suspect]
     Indication: DEMENTIA
     Dosage: 5 MG, UID/QD, ORAL; 5 MG/D, ORAL
     Route: 048
     Dates: start: 20070808
  5. PAXIL [Suspect]
     Indication: DEPRESSION
     Dosage: 20 MG, BID, ORAL
     Route: 048
     Dates: start: 20050907, end: 20070721
  6. CALBLOCK (AZELNIDIPINE) TABLET [Concomitant]
  7. TENORMIN [Concomitant]
  8. BLOPRESS (CANDESARTAN CILEXETIL) TABLET [Concomitant]

REACTIONS (2)
  - DEMENTIA [None]
  - PARKINSONISM [None]
